FAERS Safety Report 16245041 (Version 1)
Quarter: 2019Q2

REPORT INFORMATION
  Report Type: Other
  Country: US (occurrence: IT)
  Receive Date: 20190426
  Receipt Date: 20190426
  Transmission Date: 20190711
  Serious: Yes (Life-Threatening, Hospitalization)
  Sender: FDA-Public Use
  Company Number: IT-BRECKENRIDGE PHARMACEUTICAL, INC.-2066287

PATIENT
  Age: 54 Year
  Sex: Male

DRUGS (2)
  1. CHOLECALCIFEROL 25,000 IU EVERY 2 WEEKS FOR AT LEAST 6 MONTHS [Concomitant]
  2. ZOLEDRONIC ACID [Suspect]
     Active Substance: ZOLEDRONIC ACID
     Indication: SPINAL FRACTURE

REACTIONS (4)
  - Hypocalcaemia [None]
  - Electrocardiogram QT prolonged [Recovering/Resolving]
  - Ventricular extrasystoles [None]
  - Hypophosphataemia [None]
